FAERS Safety Report 12593020 (Version 1)
Quarter: 2016Q3

REPORT INFORMATION
  Report Type: Spontaneous
  Country: US (occurrence: US)
  Receive Date: 20160726
  Receipt Date: 20160726
  Transmission Date: 20161109
  Serious: No
  Sender: FDA-Public Use
  Company Number: US-ABBVIE-16P-163-1595418-00

PATIENT
  Sex: Female
  Weight: 103.97 kg

DRUGS (1)
  1. SYNTHROID [Suspect]
     Active Substance: LEVOTHYROXINE SODIUM
     Indication: PRODUCT USED FOR UNKNOWN INDICATION
     Route: 065

REACTIONS (6)
  - Facial pain [Unknown]
  - Diplopia [Unknown]
  - Rhinorrhoea [Unknown]
  - Anxiety [Unknown]
  - Adverse drug reaction [Unknown]
  - Dry throat [Unknown]
